FAERS Safety Report 21957454 (Version 1)
Quarter: 2023Q1

REPORT INFORMATION
  Report Type: Spontaneous
  Country: FR (occurrence: FR)
  Receive Date: 20230206
  Receipt Date: 20230206
  Transmission Date: 20230417
  Serious: Yes (Hospitalization)
  Sender: FDA-Public Use
  Company Number: None

PATIENT
  Age: 53 Year
  Sex: Female

DRUGS (1)
  1. VALPROIC ACID [Suspect]
     Active Substance: VALPROIC ACID
     Indication: Mental disorder
     Dosage: 1500 MILLIGRAM, QD
     Route: 048

REACTIONS (2)
  - Extrapyramidal disorder [Unknown]
  - Overdose [Unknown]

NARRATIVE: CASE EVENT DATE: 20221124
